FAERS Safety Report 5398082-6 (Version None)
Quarter: 2007Q3

REPORT INFORMATION
  Report Type: 
  Country: None (occurrence: None)
  Receive Date: 20070726
  Receipt Date: 20070716
  Transmission Date: 20080115
  Serious: Yes (Other)
  Sender: FDA-Public Use
  Company Number: ES-PFIZER INC-2007005921

PATIENT
  Sex: Female
  Weight: 62 kg

DRUGS (5)
  1. LYRICA [Suspect]
     Indication: GENERALISED ANXIETY DISORDER
     Route: 048
     Dates: start: 20061030, end: 20070115
  2. VENLAFAXINE HCL [Concomitant]
     Route: 048
  3. MIRTAZAPINE [Concomitant]
     Route: 048
  4. LORAZEPAM [Concomitant]
     Route: 048
  5. NOBRITOL [Concomitant]
     Route: 048

REACTIONS (2)
  - BLISTER [None]
  - FACE OEDEMA [None]
